FAERS Safety Report 15001142 (Version 2)
Quarter: 2018Q3

REPORT INFORMATION
  Report Type: Report from Study
  Country: US (occurrence: US)
  Receive Date: 20180612
  Receipt Date: 20180807
  Transmission Date: 20181010
  Serious: Yes (Hospitalization, Other)
  Sender: FDA-Public Use
  Company Number: US-OTSUKA-2018_015037

PATIENT
  Sex: Female
  Weight: 44.9 kg

DRUGS (12)
  1. DILTIAZEM. [Concomitant]
     Active Substance: DILTIAZEM
     Indication: PRODUCT USED FOR UNKNOWN INDICATION
     Dosage: UNK, QD (240)
     Route: 065
  2. GABAPENTIN. [Concomitant]
     Active Substance: GABAPENTIN
     Indication: PRODUCT USED FOR UNKNOWN INDICATION
     Dosage: UNK (PRN)
     Route: 065
  3. PEPCID [Concomitant]
     Active Substance: FAMOTIDINE
     Indication: PRODUCT USED FOR UNKNOWN INDICATION
     Dosage: UNK
     Route: 065
  4. OXYCODONE [Concomitant]
     Active Substance: OXYCODONE
     Indication: PRODUCT USED FOR UNKNOWN INDICATION
     Dosage: UNK (PRN)
     Route: 065
  5. DILAUDID [Concomitant]
     Active Substance: HYDROMORPHONE HYDROCHLORIDE
     Indication: PRODUCT USED FOR UNKNOWN INDICATION
     Dosage: UNK
     Route: 065
  6. CLARITIN [Concomitant]
     Active Substance: LORATADINE
     Indication: PRODUCT USED FOR UNKNOWN INDICATION
     Dosage: UNK
     Route: 065
  7. LOVENOX [Concomitant]
     Active Substance: ENOXAPARIN SODIUM
     Indication: PRODUCT USED FOR UNKNOWN INDICATION
     Dosage: UNK
     Route: 065
  8. TOLVAPTAN [Suspect]
     Active Substance: TOLVAPTAN
     Indication: BLOOD OSMOLARITY DECREASED
     Dosage: 15 MG, QD
     Route: 048
     Dates: start: 20171219
  9. ASPIRIN. [Concomitant]
     Active Substance: ASPIRIN
     Indication: PRODUCT USED FOR UNKNOWN INDICATION
     Dosage: UNK
     Route: 065
  10. SYNTHROID [Concomitant]
     Active Substance: LEVOTHYROXINE SODIUM
     Indication: PRODUCT USED FOR UNKNOWN INDICATION
     Dosage: UNK
     Route: 065
  11. ADVAIR HFA [Concomitant]
     Active Substance: FLUTICASONE PROPIONATE\SALMETEROL XINAFOATE
     Indication: PRODUCT USED FOR UNKNOWN INDICATION
     Dosage: UNK
     Route: 065
  12. TOLVAPTAN [Suspect]
     Active Substance: TOLVAPTAN
     Indication: HYPONATRAEMIA

REACTIONS (36)
  - Lymphocyte count decreased [Unknown]
  - Bone lesion [Unknown]
  - Urinary retention [Unknown]
  - Diarrhoea [Unknown]
  - Perineal pain [Unknown]
  - Monocyte count increased [Unknown]
  - Vaginal infection [Unknown]
  - Paraesthesia [Unknown]
  - Nausea [Recovering/Resolving]
  - Pyrexia [Unknown]
  - Cataract [Unknown]
  - Dizziness postural [Unknown]
  - Metastases to bone [Unknown]
  - Thrombocytopenia [Unknown]
  - Urinary tract infection [Unknown]
  - Asthenia [Unknown]
  - Blood creatinine decreased [Unknown]
  - Intestinal obstruction [Unknown]
  - Gastritis viral [Unknown]
  - Hypokalaemia [Recovering/Resolving]
  - Hypophagia [Unknown]
  - Abdominal pain [Recovering/Resolving]
  - Orthostatic hypotension [Unknown]
  - Hepatic lesion [Unknown]
  - Abdominal discomfort [Unknown]
  - Musculoskeletal pain [Unknown]
  - Dysaesthesia [Unknown]
  - Blood phosphorus decreased [Unknown]
  - Cough [Unknown]
  - Failure to thrive [Unknown]
  - Cauda equina syndrome [Unknown]
  - Emphysema [Unknown]
  - Autonomic neuropathy [Unknown]
  - Decreased appetite [Unknown]
  - Blood urea decreased [Unknown]
  - Headache [Unknown]
